FAERS Safety Report 4650114-6 (Version None)
Quarter: 2005Q2

REPORT INFORMATION
  Report Type: 
  Country: None (occurrence: None)
  Receive Date: 20050502
  Receipt Date: 20050214
  Transmission Date: 20051028
  Serious: Yes (Hospitalization)
  Sender: FDA-Public Use
  Company Number: US-BRISTOL-MYERS SQUIBB COMPANY-12862330

PATIENT
  Age: 43 Year
  Sex: Female
  Weight: 106 kg

DRUGS (4)
  1. MONISTAT 1 COMBINATION PACK [Suspect]
     Indication: FUNGAL INFECTION
     Route: 067
     Dates: start: 20050120, end: 20050127
  2. ZOLOFT [Concomitant]
  3. ELAVIL [Concomitant]
  4. TYLENOL [Concomitant]

REACTIONS (10)
  - CUSHINGOID [None]
  - DYSPNOEA [None]
  - DYSURIA [None]
  - NAUSEA [None]
  - URTICARIA GENERALISED [None]
  - VAGINAL BURNING SENSATION [None]
  - VAGINAL DISCHARGE [None]
  - VAGINAL INFECTION [None]
  - VOMITING [None]
  - VULVITIS [None]
